FAERS Safety Report 25712438 (Version 1)
Quarter: 2025Q3

REPORT INFORMATION
  Report Type: Report from Study
  Country: US (occurrence: US)
  Receive Date: 20250821
  Receipt Date: 20250821
  Transmission Date: 20251021
  Serious: Yes (Other)
  Sender: ABBVIE
  Company Number: US-ABBVIE-6413777

PATIENT
  Age: 80 Year
  Sex: Female

DRUGS (2)
  1. VENCLEXTA [Suspect]
     Active Substance: VENETOCLAX
     Indication: Chronic lymphocytic leukaemia
     Dosage: LAST ADMIN DATE: 2025
     Route: 048
     Dates: start: 202506
  2. VENCLEXTA [Suspect]
     Active Substance: VENETOCLAX
     Indication: Chronic lymphocytic leukaemia
     Route: 048
     Dates: start: 2025

REACTIONS (6)
  - Hospitalisation [Not Recovered/Not Resolved]
  - Paranasal sinus hypersecretion [Unknown]
  - Hospitalisation [Recovered/Resolved]
  - Loss of personal independence in daily activities [Unknown]
  - Emotional disorder [Unknown]
  - Cough [Unknown]

NARRATIVE: CASE EVENT DATE: 20250101
